FAERS Safety Report 7034932-5 (Version None)
Quarter: 2010Q4

REPORT INFORMATION
  Report Type: 
  Country: None (occurrence: None)
  Receive Date: 20101008
  Receipt Date: 20101004
  Transmission Date: 20110411
  Serious: Yes (Hospitalization)
  Sender: FDA-Public Use
  Company Number: FR-ROCHE-730657

PATIENT
  Age: 45 Year
  Sex: Female

DRUGS (5)
  1. ROCEPHIN [Suspect]
     Indication: PYELONEPHRITIS
     Route: 051
     Dates: start: 20100410, end: 20100413
  2. DEXTROPROPOXYPHENE [Suspect]
     Dosage: TAKEN AROUND MID-DAY, SINGLE INTAKE
     Route: 048
     Dates: start: 20100407, end: 20100407
  3. PARACETAMOL [Suspect]
     Dosage: TAKEN AROUND MID-DAY, SINGLE INTAKE
     Route: 048
     Dates: start: 20100407, end: 20100407
  4. CAFFEINE [Suspect]
     Dosage: TAKEN AROUND MID-DAY, SINGLE INTAKE
     Route: 048
     Dates: start: 20100407, end: 20100407
  5. PERFALGAN [Concomitant]
     Indication: PYELONEPHRITIS
     Dates: start: 20100410

REACTIONS (5)
  - MALAISE [None]
  - NAUSEA [None]
  - PRURITUS [None]
  - RASH GENERALISED [None]
  - RASH MACULAR [None]
